FAERS Safety Report 6609658-X (Version None)
Quarter: 2010Q1

REPORT INFORMATION
  Report Type: 
  Country: None (occurrence: None)
  Receive Date: 20100302
  Receipt Date: 20100223
  Transmission Date: 20100710
  Serious: Yes (Death, Other)
  Sender: FDA-Public Use
  Company Number: US-SANOFI-AVENTIS-2010SA010820

PATIENT
  Age: 25 Year
  Sex: Female

DRUGS (1)
  1. AMBIEN [Suspect]
     Route: 048

REACTIONS (4)
  - CHOKING [None]
  - DEATH [None]
  - MYOCARDIAL INFARCTION [None]
  - VOMITING [None]
